FAERS Safety Report 17557387 (Version 1)
Quarter: 2020Q1

REPORT INFORMATION
  Report Type: Spontaneous
  Country: DE (occurrence: CN)
  Receive Date: 20200318
  Receipt Date: 20200318
  Transmission Date: 20200409
  Serious: Yes (Hospitalization)
  Sender: FDA-Public Use
  Company Number: CN-ELI_LILLY_AND_COMPANY-CN202003006474

PATIENT
  Age: 69 Year
  Sex: Male
  Weight: 53 kg

DRUGS (5)
  1. CYCLOPHOSPHAMIDE. [Concomitant]
     Active Substance: CYCLOPHOSPHAMIDE
     Indication: LYMPHOMA
     Dosage: .9 G, UNK
     Route: 065
     Dates: start: 20200210
  2. PIRARUBICIN HYDROCHLORIDE [Concomitant]
     Active Substance: PIRARUBICIN HYDROCHLORIDE
     Indication: LYMPHOMA
     Dosage: 70 MG, UNK
     Route: 042
     Dates: start: 20200210
  3. VINCRISTINE SULFATE. [Concomitant]
     Active Substance: VINCRISTINE SULFATE
     Indication: LYMPHOMA
     Dosage: 2 MG, UNK
     Route: 042
     Dates: start: 20200210
  4. PREDNISONE ACETATE [Concomitant]
     Active Substance: PREDNISONE ACETATE
     Indication: CHEMOTHERAPY
     Dosage: 30 MG, UNK
     Route: 048
     Dates: start: 20200211
  5. ERBITUX [Suspect]
     Active Substance: CETUXIMAB
     Indication: LYMPHOMA
     Dosage: 600 MG, UNK
     Route: 065
     Dates: start: 20200210

REACTIONS (1)
  - Full blood count decreased [Recovering/Resolving]

NARRATIVE: CASE EVENT DATE: 20200219
